FAERS Safety Report 16299178 (Version 1)
Quarter: 2019Q2

REPORT INFORMATION
  Report Type: Spontaneous
  Country: BE (occurrence: BE)
  Receive Date: 20190510
  Receipt Date: 20190510
  Transmission Date: 20190711
  Serious: Yes (Disabling, Other)
  Sender: FDA-Public Use
  Company Number: BE-TEVA-2019-BE-1047100

PATIENT
  Age: 60 Year
  Sex: Female
  Weight: 60 kg

DRUGS (9)
  1. TRADONAL RETARD [Concomitant]
     Active Substance: TRAMADOL HYDROCHLORIDE
     Indication: PAIN
     Route: 048
  2. ZOLPIDEM [Concomitant]
     Active Substance: ZOLPIDEM\ZOLPIDEM TARTRATE
     Indication: INSOMNIA
     Route: 048
  3. AACIDEXAM [Concomitant]
     Active Substance: DEXAMETHASONE
     Indication: PROPHYLAXIS OF NAUSEA AND VOMITING
     Dosage: AN ADMINISTRATION ON 10/04/2018 AND 2/05/2018
     Dates: start: 20180410, end: 20180502
  4. DULCOLAX NOS [Concomitant]
     Active Substance: BISACODYL OR DOCUSATE SODIUM
     Indication: CONSTIPATION
     Dosage: IF NECESSARY
     Route: 048
  5. AKYNZEO [Concomitant]
     Active Substance: NETUPITANT\PALONOSETRON HYDROCHLORIDE
     Indication: PROPHYLAXIS OF NAUSEA AND VOMITING
     Dosage: THE 10/04/2018 AND THE 2/05/2018
     Route: 048
     Dates: start: 20180410, end: 20180502
  6. CISPLATINE TEVA [Suspect]
     Active Substance: CISPLATIN
     Indication: NEOPLASM
     Dosage: AN ADMINISTRATION ON 10/04/2018 AND 2/05/2018
     Dates: start: 20180410, end: 20180502
  7. ZYPREXA VELOTAB 5 MG [Concomitant]
     Indication: PROPHYLAXIS OF NAUSEA AND VOMITING
     Dosage: 5MG ON THE DAY OF ADMINISTRATION OF CHEMO AND THEN THE NEXT 3 DAYS
     Route: 048
     Dates: start: 20180410, end: 20180505
  8. L-THYROXINE CHRISTIAENS [Concomitant]
     Active Substance: LEVOTHYROXINE
     Indication: HYPOTHYROIDISM
     Route: 048
  9. DEXAMETHASONE. [Concomitant]
     Active Substance: DEXAMETHASONE
     Indication: PROPHYLAXIS OF NAUSEA AND VOMITING
     Dosage: 8MG THE DAY AFTER THE CHEMO THEN 4MG THE FOLLOWING 2 DAYS
     Route: 048
     Dates: start: 20180410, end: 20180505

REACTIONS (1)
  - Hypoacusis [Not Recovered/Not Resolved]

NARRATIVE: CASE EVENT DATE: 20180516
